FAERS Safety Report 18545722 (Version 1)
Quarter: 2020Q4

REPORT INFORMATION
  Report Type: Spontaneous
  Country: US (occurrence: US)
  Receive Date: 20201125
  Receipt Date: 20201125
  Transmission Date: 20210114
  Serious: Yes (Hospitalization)
  Sender: FDA-Public Use
  Company Number: None

PATIENT
  Age: 58 Year
  Sex: Male
  Weight: 82.1 kg

DRUGS (2)
  1. NONE [Concomitant]
     Active Substance: UNSPECIFIED INGREDIENT
  2. BAMLANIVIMAB. [Suspect]
     Active Substance: BAMLANIVIMAB
     Indication: COVID-19
     Route: 042
     Dates: start: 20201122, end: 20201122

REACTIONS (14)
  - Condition aggravated [None]
  - Oxygen saturation decreased [None]
  - Sinus tachycardia [None]
  - Hypophagia [None]
  - Chills [None]
  - Nausea [None]
  - Fatigue [None]
  - Hyperhidrosis [None]
  - Body temperature increased [None]
  - Cough [None]
  - Tachycardia [None]
  - Hypotension [None]
  - Dyspnoea [None]
  - Crepitations [None]

NARRATIVE: CASE EVENT DATE: 20201122
